FAERS Safety Report 8089042-5 (Version None)
Quarter: 2012Q1

REPORT INFORMATION
  Report Type: 
  Country: None (occurrence: None)
  Receive Date: 20120128
  Receipt Date: 20110707
  Transmission Date: 20120608
  Serious: No
  Sender: FDA-Public Use
  Company Number: US-ABBOTT-11P-163-0700453-00

PATIENT
  Age: 37 Year
  Sex: Female

DRUGS (3)
  1. HUMIRA [Suspect]
     Indication: RHEUMATOID ARTHRITIS
     Dates: start: 20101222
  2. NAPROXEN (ALEVE) [Concomitant]
     Indication: BONE PAIN
     Dosage: AS REQUIRED
  3. METHOTREXATE [Concomitant]
     Indication: RHEUMATOID ARTHRITIS
     Dosage: 6 PILLS A WEEK

REACTIONS (10)
  - FATIGUE [None]
  - INSOMNIA [None]
  - OROPHARYNGEAL PAIN [None]
  - MALAISE [None]
  - DIZZINESS [None]
  - BONE PAIN [None]
  - HEART RATE DECREASED [None]
  - DYSPNOEA [None]
  - UPPER-AIRWAY COUGH SYNDROME [None]
  - RHINORRHOEA [None]
